FAERS Safety Report 8500120-6 (Version None)
Quarter: 2012Q3

REPORT INFORMATION
  Report Type: 
  Country: None (occurrence: None)
  Receive Date: 20120710
  Receipt Date: 20120703
  Transmission Date: 20120928
  Serious: Yes (Other)
  Sender: FDA-Public Use
  Company Number: FR-PFIZER INC-2012152895

PATIENT
  Age: 61 Year
  Sex: Female
  Weight: 41 kg

DRUGS (25)
  1. CERTICAN [Concomitant]
     Dosage: 0.75 MG, 2X/DAY
     Dates: start: 20110505
  2. CERTICAN [Concomitant]
     Dosage: 1.5 MG, 2X/DAY
  3. PRAVASTATIN SODIUM [Concomitant]
     Dosage: 20 MG, 1X/DAY
     Dates: start: 20091001, end: 20110701
  4. PYRAZINAMIDE [Concomitant]
     Indication: TUBERCULOSIS
     Dosage: 1000 MG DAILY
     Route: 048
     Dates: start: 20110505
  5. VFEND [Suspect]
     Dosage: UNK
     Route: 048
     Dates: end: 20110906
  6. BACTRIM DS [Concomitant]
     Dosage: 1 DF, THRICE PER WEEK
     Dates: start: 20091001, end: 20110701
  7. VFEND [Suspect]
     Dosage: 300 MG, 2X/DAY
     Route: 048
     Dates: start: 20110505, end: 20110501
  8. PROGRAF [Concomitant]
     Dosage: 2 MG, 2X/DAY
     Dates: start: 20110505
  9. PYRAZINAMIDE [Concomitant]
     Dosage: 150 MG DAILY
     Route: 048
     Dates: start: 20110524, end: 20110705
  10. MYAMBUTOL [Concomitant]
     Indication: TUBERCULOSIS
     Dosage: 400 MG, 2X/DAY
     Route: 048
     Dates: start: 20110505, end: 20110705
  11. PROGRAF [Concomitant]
     Dosage: 1 MG, 2X/DAY
     Dates: start: 20110601
  12. CERTICAN [Concomitant]
     Dosage: 0.5 MG, 2X/DAY
     Dates: end: 20110504
  13. VFEND [Suspect]
     Dosage: 250 MG, 2X/DAY
     Route: 048
     Dates: start: 20110501, end: 20110701
  14. PROGRAF [Concomitant]
     Dosage: 2 MG, 2X/DAY
     Dates: start: 20110101, end: 20110504
  15. VALGANCICLOVIR [Concomitant]
     Dosage: 900 MG DAILY
  16. VFEND [Suspect]
     Indication: BRONCHOPULMONARY ASPERGILLOSIS
     Dosage: 200 MG, 2X/DAY
     Route: 048
     Dates: start: 20101001, end: 20110504
  17. PROGRAF [Concomitant]
     Dosage: 3 TO 3.5 MG TWICE DAILY
     Dates: start: 20091001, end: 20110101
  18. PROGRAF [Concomitant]
     Dosage: 4 MG, 2X/DAY
  19. VALGANCICLOVIR [Concomitant]
     Dosage: 450 MG DAILY
  20. ANSATIPIN [Concomitant]
     Indication: TUBERCULOSIS
     Dosage: 150 MG DAILY
     Dates: start: 20110505, end: 20110705
  21. RIMIFON [Concomitant]
     Indication: TUBERCULOSIS
     Dosage: 200 MG DAILY
     Route: 048
     Dates: start: 20110505, end: 20110705
  22. PREDNISONE TAB [Concomitant]
     Dosage: 5 MG, 1X/DAY
  23. ZITHROMAX [Concomitant]
     Dosage: 500 MG, 1X/DAY
     Dates: start: 20091001, end: 20110701
  24. IRBESARTAN [Concomitant]
     Dosage: 75 MG
  25. NEXIUM [Concomitant]
     Dosage: 20 MG, 1X/DAY

REACTIONS (1)
  - DEAFNESS BILATERAL [None]
